FAERS Safety Report 6254495-1 (Version None)
Quarter: 2009Q3

REPORT INFORMATION
  Report Type: 
  Country: None (occurrence: None)
  Receive Date: 20090702
  Receipt Date: 20090623
  Transmission Date: 20100115
  Serious: Yes (Hospitalization, Other)
  Sender: FDA-Public Use
  Company Number: US-ABBOTT-09P-163-0581385-00

PATIENT
  Sex: Female
  Weight: 49.94 kg

DRUGS (5)
  1. KALETRA [Suspect]
     Indication: HIV INFECTION
     Route: 048
     Dates: start: 20070101
  2. TRUVADA [Concomitant]
     Indication: HIV INFECTION
     Dosage: 300/500 MG
     Route: 048
  3. MS CONTIN [Concomitant]
     Indication: PAIN
     Route: 048
  4. ZOLOFT [Concomitant]
     Indication: DEPRESSION
     Route: 048
  5. NEURONTIN [Concomitant]
     Indication: NEUROPATHY PERIPHERAL
     Route: 048

REACTIONS (3)
  - NON-HODGKIN'S LYMPHOMA [None]
  - SMALL INTESTINAL OBSTRUCTION [None]
  - VOMITING [None]
